FAERS Safety Report 5594683-0 (Version None)
Quarter: 2008Q1

REPORT INFORMATION
  Report Type: 
  Country: None (occurrence: None)
  Receive Date: 20080117
  Receipt Date: 20080108
  Transmission Date: 20080703
  Serious: Yes (Congenital Anomaly, Other)
  Sender: FDA-Public Use
  Company Number: ZA-AVENTIS-200810335GDDC

PATIENT
  Sex: Female

DRUGS (16)
  1. PYRAZINAMIDE [Suspect]
  2. PYRAZINAMIDE [Suspect]
     Indication: TUBERCULOSIS
  3. RIFAMPICIN [Suspect]
  4. RIFAMPICIN [Suspect]
     Indication: TUBERCULOSIS
  5. ISONIAZID [Suspect]
  6. ISONIAZID [Suspect]
     Indication: TUBERCULOSIS
  7. COTRIMOXAZOLE [Suspect]
  8. COTRIMOXAZOLE [Suspect]
     Indication: TUBERCULOSIS
  9. ETHAMBUTOL HYDROCHLORIDE [Suspect]
  10. ETHAMBUTOL HYDROCHLORIDE [Suspect]
     Indication: TUBERCULOSIS
  11. STAVUDINE [Suspect]
  12. STAVUDINE [Suspect]
     Indication: TUBERCULOSIS
  13. LAMIVUDINE [Suspect]
  14. LAMIVUDINE [Suspect]
     Indication: TUBERCULOSIS
  15. NEVIRAPINE [Suspect]
  16. NEVIRAPINE [Suspect]
     Indication: TUBERCULOSIS

REACTIONS (2)
  - DANDY-WALKER SYNDROME [None]
  - DRUG EXPOSURE DURING PREGNANCY [None]
